FAERS Safety Report 24400819 (Version 2)
Quarter: 2024Q4

REPORT INFORMATION
  Report Type: Spontaneous
  Country: US (occurrence: US)
  Receive Date: 20241006
  Receipt Date: 20241110
  Transmission Date: 20250114
  Serious: No
  Sender: SANOFI AVENTIS
  Company Number: US-SA-2024SA284635

PATIENT
  Age: 14 Year
  Sex: Male

DRUGS (1)
  1. DUPIXENT [Suspect]
     Active Substance: DUPILUMAB
     Indication: Eosinophilic oesophagitis
     Dosage: 300 MG, QW
     Route: 058
     Dates: start: 202408

REACTIONS (6)
  - Abdominal pain upper [Unknown]
  - Vomiting [Not Recovered/Not Resolved]
  - Influenza [Unknown]
  - Streptococcal infection [Unknown]
  - Viral infection [Unknown]
  - Cough [Unknown]

NARRATIVE: CASE EVENT DATE: 20240929
